FAERS Safety Report 18676926 (Version 5)
Quarter: 2022Q4

REPORT INFORMATION
  Report Type: Report from Study
  Country: FR (occurrence: FR)
  Receive Date: 20201229
  Receipt Date: 20221003
  Transmission Date: 20230113
  Serious: Yes (Hospitalization, Other)
  Sender: FDA-Public Use
  Company Number: FR-PFIZER INC-2020511839

PATIENT
  Age: 57 Year
  Sex: Male
  Weight: 56 kg

DRUGS (4)
  1. XELJANZ [Suspect]
     Active Substance: TOFACITINIB CITRATE
     Indication: Rheumatoid arthritis
     Dosage: 5 MG, 2X/DAY
     Dates: start: 20191118, end: 20201201
  2. XELJANZ [Suspect]
     Active Substance: TOFACITINIB CITRATE
     Dosage: 5 MG, 2X/DAY
     Dates: start: 20210302
  3. METHOTREXATE [Concomitant]
     Active Substance: METHOTREXATE
     Indication: Rheumatoid arthritis
     Dosage: UNK
     Route: 048
     Dates: start: 201911, end: 20201201
  4. KETOPROFEN [Concomitant]
     Active Substance: KETOPROFEN
     Indication: Abdominal pain
     Dosage: UNK
     Route: 048
     Dates: start: 20201130, end: 20201202

REACTIONS (1)
  - Appendicitis perforated [Recovered/Resolved]

NARRATIVE: CASE EVENT DATE: 20201128
